FAERS Safety Report 5810811-3 (Version None)
Quarter: 2008Q3

REPORT INFORMATION
  Report Type: 
  Country: None (occurrence: None)
  Receive Date: 20080710
  Receipt Date: 20080627
  Transmission Date: 20090109
  Serious: Yes (Other)
  Sender: FDA-Public Use
  Company Number: 236178J08USA

PATIENT
  Age: 26 Year
  Sex: Male

DRUGS (3)
  1. REBIF(INTERFERON BETA) [Suspect]
     Indication: MULTIPLE SCLEROSIS
     Dosage: 44 MCG, 3 IN 1 WEEKS, SUBCUTANEOUS
     Route: 058
     Dates: start: 20080523
  2. COUMADIN [Concomitant]
  3. DILANTIN [Concomitant]

REACTIONS (5)
  - ANTICONVULSANT DRUG LEVEL DECREASED [None]
  - DROOLING [None]
  - EYE ROLLING [None]
  - PALLOR [None]
  - VISION BLURRED [None]
